FAERS Safety Report 4840190-X (Version None)
Quarter: 2005Q4

REPORT INFORMATION
  Report Type: 
  Country: None (occurrence: None)
  Receive Date: 20051125
  Receipt Date: 20050712
  Transmission Date: 20060501
  Serious: Yes (Hospitalization)
  Sender: FDA-Public Use
  Company Number: 2005BI013206

PATIENT
  Sex: Female

DRUGS (1)
  1. AVONEX [Suspect]
     Indication: MULTIPLE SCLEROSIS
     Dosage: 30 UG; QW; IM
     Route: 030
     Dates: start: 19990101

REACTIONS (5)
  - BLOOD DISORDER [None]
  - INFECTION [None]
  - RENAL IMPAIRMENT [None]
  - SCAR [None]
  - URINARY INCONTINENCE [None]
